FAERS Safety Report 7027621-4 (Version None)
Quarter: 2010Q4

REPORT INFORMATION
  Report Type: 
  Country: None (occurrence: None)
  Receive Date: 20101004
  Receipt Date: 20100921
  Transmission Date: 20110411
  Serious: Yes (Hospitalization)
  Sender: FDA-Public Use
  Company Number: US-WATSON-2010-12952

PATIENT
  Age: 53 Year
  Sex: Female

DRUGS (2)
  1. GABAPENTIN [Suspect]
     Indication: NEURALGIA
     Dosage: 300 MG, BID (MONRING AND NOON)
  2. GABAPENTIN [Suspect]
     Dosage: 100 MG, QHS

REACTIONS (9)
  - AGITATION [None]
  - ANXIETY [None]
  - CONFUSIONAL STATE [None]
  - DISORIENTATION [None]
  - HEADACHE [None]
  - NERVOUSNESS [None]
  - PHOTOPHOBIA [None]
  - RESTLESSNESS [None]
  - WITHDRAWAL SYNDROME [None]
